FAERS Safety Report 9142659 (Version 3)
Quarter: 2014Q1

REPORT INFORMATION
  Report Type: Report from Study
  Country: FR (occurrence: FR)
  Receive Date: 20130306
  Receipt Date: 20140324
  Transmission Date: 20141002
  Serious: Yes (Death, Hospitalization)
  Sender: FDA-Public Use
  Company Number: PHHY2013FR021604

PATIENT
  Age: 76 Year
  Sex: Female
  Weight: 63 kg

DRUGS (3)
  1. ICL670A [Suspect]
     Indication: IRON OVERLOAD
     Dates: start: 2007, end: 201006
  2. TAVANIC [Concomitant]
     Indication: PROPHYLAXIS
     Dosage: 500 MG, DAILY
     Dates: start: 201005
  3. NOXAFIL [Concomitant]
     Indication: PROPHYLAXIS
     Dosage: 600 MG, DAILY
     Dates: start: 201005

REACTIONS (8)
  - Death [Fatal]
  - Organising pneumonia [Not Recovered/Not Resolved]
  - Aspergillus infection [Not Recovered/Not Resolved]
  - Serratia sepsis [Recovered/Resolved with Sequelae]
  - Status epilepticus [Not Recovered/Not Resolved]
  - Pneumonia [Not Recovered/Not Resolved]
  - Pyrexia [Recovered/Resolved with Sequelae]
  - Neutropenia [Recovered/Resolved with Sequelae]
